FAERS Safety Report 8377625-4 (Version None)
Quarter: 2012Q2

REPORT INFORMATION
  Report Type: 
  Country: None (occurrence: None)
  Receive Date: 20120522
  Receipt Date: 20120516
  Transmission Date: 20120825
  Serious: Yes (Hospitalization)
  Sender: FDA-Public Use
  Company Number: US-BAYER-2012-049540

PATIENT
  Age: 24 Year
  Sex: Female
  Weight: 64 kg

DRUGS (3)
  1. YAZ [Suspect]
  2. DROSPIRENONE AND ETHINYL ESTRADIOL [Suspect]
     Indication: ORAL CONTRACEPTION
     Dosage: 3-20 MG-MCG, 1 TABLET QD DAILY
     Route: 048
  3. METROGEL-VAGINAL [METRONIDAZOLE] [Concomitant]
     Dosage: 0.75 %, 1 APPLICATOR FULL EVERY HS FOR 7 DAYS
     Route: 067
     Dates: start: 20111128

REACTIONS (1)
  - PULMONARY EMBOLISM [None]
